FAERS Safety Report 15414031 (Version 2)
Quarter: 2018Q4

REPORT INFORMATION
  Report Type: Report from Study
  Country: None (occurrence: FI)
  Receive Date: 20180921
  Receipt Date: 20181012
  Transmission Date: 20190204
  Serious: Yes (Other)
  Sender: FDA-Public Use
  Company Number: FI-ABBVIE-18K-055-2493122-00

PATIENT
  Age: 13 Year
  Sex: Female

DRUGS (3)
  1. IMODIUM [Concomitant]
     Active Substance: LOPERAMIDE HYDROCHLORIDE
     Indication: PRODUCT USED FOR UNKNOWN INDICATION
  2. HUMIRA [Suspect]
     Active Substance: ADALIMUMAB
     Indication: PRODUCT USED FOR UNKNOWN INDICATION
     Route: 058
     Dates: start: 2011, end: 2011
  3. PROPRAL [Concomitant]
     Indication: MIGRAINE

REACTIONS (3)
  - Cutaneous symptom [Unknown]
  - Colectomy [Recovered/Resolved]
  - Proctectomy [Recovered/Resolved]

NARRATIVE: CASE EVENT DATE: 2011
